FAERS Safety Report 7665349-8 (Version None)
Quarter: 2011Q3

REPORT INFORMATION
  Report Type: 
  Country: None (occurrence: None)
  Receive Date: 20110806
  Receipt Date: 20110307
  Transmission Date: 20111222
  Serious: No
  Sender: FDA-Public Use
  Company Number: US-ABBOTT-11P-163-0709534-00

PATIENT
  Sex: Male
  Weight: 88.53 kg

DRUGS (2)
  1. ASPIRIN [Concomitant]
     Indication: PRODUCT USED FOR UNKNOWN INDICATION
     Dosage: AT BEDTIME
  2. NIASPAN [Suspect]
     Indication: CEREBROVASCULAR ACCIDENT
     Dosage: AT BEDTIME
     Dates: start: 20110105

REACTIONS (2)
  - FEELING HOT [None]
  - FLUSHING [None]
